FAERS Safety Report 4509878-4 (Version None)
Quarter: 2004Q4

REPORT INFORMATION
  Report Type: 
  Country: None (occurrence: None)
  Receive Date: 20041124
  Receipt Date: 20001026
  Transmission Date: 20050328
  Serious: Yes (Hospitalization)
  Sender: FDA-Public Use
  Company Number: 10583474

PATIENT
  Age: 39 Year
  Sex: Female

DRUGS (2)
  1. ZERIT [Suspect]
     Indication: HIV TEST POSITIVE
     Route: 048
     Dates: start: 19990614
  2. EPIVIR [Suspect]
     Indication: HIV TEST POSITIVE
     Dates: start: 19960923

REACTIONS (4)
  - FALL [None]
  - INJURY [None]
  - LOWER LIMB FRACTURE [None]
  - OSTEOPOROSIS [None]
